FAERS Safety Report 9630663 (Version 2)
Quarter: 2014Q1

REPORT INFORMATION
  Report Type: Spontaneous
  Country: US (occurrence: None)
  Receive Date: 20131016
  Receipt Date: 20140220
  Transmission Date: 20141002
  Serious: Yes (Congenital Anomaly)
  Sender: FDA-Public Use
  Company Number: AUR-APL-2013-08597

PATIENT
  Sex: 0

DRUGS (4)
  1. ZIDOVUDINE [Suspect]
     Indication: ANTIRETROVIRAL THERAPY
     Dosage: TRANSPLACENTAL
  2. DARUNAVIR (PREZISTA) [Suspect]
     Indication: ANTIRETROVIRAL THERAPY
     Dosage: TRANSPLACENTAL
  3. NORVIR (RITONAVIR) [Suspect]
     Indication: ANTIRETROVIRAL THERAPY
     Dosage: TRANSPLACENTAL
  4. TRUVADA [Suspect]
     Indication: ANTIRETROVIRAL THERAPY
     Dosage: TRANSPLACENTAL

REACTIONS (2)
  - Maternal drugs affecting foetus [None]
  - Congenital foot malformation [None]
